FAERS Safety Report 13385105 (Version 1)
Quarter: 2017Q1

REPORT INFORMATION
  Report Type: Spontaneous
  Country: US (occurrence: US)
  Receive Date: 20170330
  Receipt Date: 20170330
  Transmission Date: 20170429
  Serious: Yes (Disabling)
  Sender: FDA-Public Use
  Company Number: None

PATIENT
  Age: 41 Year
  Sex: Female
  Weight: 62.1 kg

DRUGS (2)
  1. VITAMINS [Concomitant]
     Active Substance: VITAMINS
  2. RELEEV COLD SORE TREATMENT [Suspect]
     Active Substance: BENZALKONIUM CHLORIDE
     Indication: ORAL HERPES
     Dosage: 1 DROP AT BEDTIME TOPICAL
     Route: 061
     Dates: start: 20170327, end: 20170330

REACTIONS (3)
  - Application site swelling [None]
  - Lip swelling [None]
  - Lip pruritus [None]

NARRATIVE: CASE EVENT DATE: 20170330
